FAERS Safety Report 19098946 (Version 1)
Quarter: 2021Q2

REPORT INFORMATION
  Report Type: Spontaneous
  Country: NL (occurrence: NL)
  Receive Date: 20210406
  Receipt Date: 20210406
  Transmission Date: 20210717
  Serious: Yes (Hospitalization)
  Sender: FDA-Public Use
  Company Number: NL-009507513-2103NLD007947

PATIENT
  Sex: Male
  Weight: 76.4 kg

DRUGS (24)
  1. CASPOFUNGIN ACETATE. [Suspect]
     Active Substance: CASPOFUNGIN ACETATE
     Dosage: CHARGING DOSAGE OF 70MG INTRAVENOUS
     Route: 042
     Dates: start: 20210227
  2. TAMSULOSIN HYDROCHLORIDE. [Concomitant]
     Active Substance: TAMSULOSIN HYDROCHLORIDE
     Dosage: 0,4 MG, ORAL, STOP UNTIL FURTHER NOTICE
     Route: 048
  3. VANCOMYCIN [Concomitant]
     Active Substance: VANCOMYCIN
     Dosage: 1700 MG PER DAY; CONCENTRATION: 25 MG/ML
     Route: 042
  4. DIPYRONE [Concomitant]
     Active Substance: DIPYRONE
     Dosage: 1000 MG, ORAL, EVERY 6 HOURS; CONCENTRATON: 500 MG/ML
     Route: 048
  5. CASPOFUNGIN ACETATE. [Suspect]
     Active Substance: CASPOFUNGIN ACETATE
     Indication: SYSTEMIC CANDIDA
     Dosage: AFTER THAT ONCE PER DAY 50MG
     Route: 042
     Dates: end: 20210301
  6. CALCIUM CARBONATE (+) CHOLECALCIFEROL [Concomitant]
     Active Substance: CALCIUM CARBONATE\CHOLECALCIFEROL
     Dosage: PIECE, ORAL, ONCE PER DAY AT; STRENGTH: 1.25G/ 800IU (500 MG CA)
     Route: 048
  7. ASPIRIN. [Concomitant]
     Active Substance: ASPIRIN
     Dosage: 80MG ORAL ONCE PER DAY
     Route: 048
  8. BISOPROLOL [Concomitant]
     Active Substance: BISOPROLOL
     Dosage: 1.25 MG, ONCE PER DAY
     Route: 048
  9. PANTOPRAZOLE [Concomitant]
     Active Substance: PANTOPRAZOLE
     Dosage: 40 MG, ORAL ONCE PER DAY
     Route: 048
  10. FLUCONAZOLE. [Concomitant]
     Active Substance: FLUCONAZOLE
     Dosage: 400 MG, INTRAVENOUS, ONCE PER DAY; CONCENTRATION: 2 MG/ML
     Route: 042
  11. FRAXIPARIN [Concomitant]
     Active Substance: NADROPARIN CALCIUM
     Dosage: 2850 IU SUBCUTANEOUS, 1 TIME PER DAY WITH DINNER; CONCENTRATION: 2850 IU/0.3 ML (9500IU/ML); DRUG AL
     Route: 058
  12. SIMVASTATIN. [Concomitant]
     Active Substance: SIMVASTATIN
     Dosage: 40MG, ORAL, STOP UNTIL FURTHER NOTICE
     Route: 048
  13. SODIUM CHLORIDE. [Concomitant]
     Active Substance: SODIUM CHLORIDE
     Dosage: 500 MILLILITER, QD; CONCENTRATION: 9 MG/ML
     Route: 042
  14. TEMAZEPAM. [Concomitant]
     Active Substance: TEMAZEPAM
     Dosage: 10 MG, ORAL, IF NEEDED AN
     Route: 048
  15. MICROLAX (SODIUM LAURYL SULFOACETATE (+) SORBITOL) [Concomitant]
     Dosage: 5 ML (VIAL), RECTAL, ONE?TIME
     Route: 054
  16. HALOPERIDOL. [Concomitant]
     Active Substance: HALOPERIDOL
     Dosage: 1 MILLIGRAM, ORAL, ONCE PER DAY AT 20:00
     Route: 048
  17. COLEX [Concomitant]
     Dosage: 133 ML, RECTAL, ONCE?TIME
     Route: 054
  18. NOVORAPID [Concomitant]
     Active Substance: INSULIN ASPART
     Dosage: 0?10 IU, 0?10 IU, SUBCUTANEOUS, IF NEEDED 4DD
     Route: 058
  19. FENTANYL. [Concomitant]
     Active Substance: FENTANYL
     Dosage: TRANSDERMAL, 1 TIME PER 3 DAYS; FENTANYL PATCH 50MICROG/HOUR (GENERIC+ DUROGESIC)
     Route: 062
  20. ACETAMINOPHEN. [Concomitant]
     Active Substance: ACETAMINOPHEN
     Dosage: 1000 MILLIGRAM, ORAL, 3 TIMES PER DAY
     Route: 048
  21. OXYCODONE [Concomitant]
     Active Substance: OXYCODONE
     Dosage: 5MG, ORAL, ONCE PER DAY AT 20:00
     Route: 048
  22. MOVICOLON [Concomitant]
     Active Substance: POLYETHYLENE GLYCOL 3350\POTASSIUM CHLORIDE\SODIUM BICARBONATE\SODIUM CHLORIDE
     Dosage: 1 SACHET, ORAL, 2 TIMES PER DAY
     Route: 048
  23. FUROSEMIDE. [Concomitant]
     Active Substance: FUROSEMIDE
     Dosage: 20 MG, ORAL ONCE PER DAY
     Route: 048
  24. OXYCODONE [Concomitant]
     Active Substance: OXYCODONE
     Dosage: FORMULATION: TABLET/CAPSULE; 5MG, ORAL, IF NEEDED 6 TIMES PER DAY
     Route: 048

REACTIONS (1)
  - Delirium [Recovered/Resolved]

NARRATIVE: CASE EVENT DATE: 2021
